FAERS Safety Report 12060534 (Version 2)
Quarter: 2019Q2

REPORT INFORMATION
  Report Type: Spontaneous
  Country: IT (occurrence: IT)
  Receive Date: 20160210
  Receipt Date: 20190528
  Transmission Date: 20190711
  Serious: Yes (Other)
  Sender: FDA-Public Use
  Company Number: IT-JNJFOC-20160203708

PATIENT
  Age: 78 Year
  Sex: Female

DRUGS (1)
  1. INFLIXIMAB, RECOMBINANT [Suspect]
     Active Substance: INFLIXIMAB
     Indication: RHEUMATOID ARTHRITIS
     Route: 042

REACTIONS (5)
  - Tachycardia [Unknown]
  - Infusion related reaction [Unknown]
  - Neurofibromatosis [Unknown]
  - Dyspnoea [Unknown]
  - Blood pressure abnormal [Unknown]
